FAERS Safety Report 7369865-8 (Version None)
Quarter: 2011Q1

REPORT INFORMATION
  Report Type: 
  Country: None (occurrence: None)
  Receive Date: 20110318
  Receipt Date: 20110318
  Transmission Date: 20110831
  Serious: Yes (Hospitalization)
  Sender: FDA-Public Use
  Company Number: None

PATIENT
  Sex: Male
  Weight: 49 kg

DRUGS (5)
  1. DOXORUBICIN HCL [Suspect]
     Dosage: 105 MG
  2. PEG-L-ASPARAGINASE (K-H) [Suspect]
     Dosage: 3575 MG
  3. VINCRISTINE SULFATE [Suspect]
     Dosage: 6 MG
  4. METHOTREXATE [Suspect]
     Dosage: 15 MG
  5. DEXAMETHASONE [Suspect]
     Dosage: 196 MG

REACTIONS (8)
  - GENITAL HYPOAESTHESIA [None]
  - MALAISE [None]
  - CONSTIPATION [None]
  - HAEMORRHOIDS [None]
  - RECTAL FISSURE [None]
  - SEPSIS [None]
  - PAIN [None]
  - HAEMORRHAGE [None]
